FAERS Safety Report 14204199 (Version 1)
Quarter: 2017Q4

REPORT INFORMATION
  Report Type: Spontaneous
  Country: US (occurrence: US)
  Receive Date: 20171120
  Receipt Date: 20171120
  Transmission Date: 20180321
  Serious: No
  Sender: FDA-Public Use
  Company Number: US-BAYER-2017-223910

PATIENT
  Age: 70 Year
  Sex: Male

DRUGS (1)
  1. ALEVE [Suspect]
     Active Substance: NAPROXEN SODIUM
     Indication: PAIN
     Dosage: UNK
     Route: 048
     Dates: start: 20171116, end: 20171118

REACTIONS (3)
  - Oropharyngeal pain [Recovered/Resolved]
  - Throat irritation [Unknown]
  - Throat irritation [Unknown]

NARRATIVE: CASE EVENT DATE: 20171116
